FAERS Safety Report 4516508-4 (Version None)
Quarter: 2004Q4

REPORT INFORMATION
  Report Type: 
  Country: None (occurrence: None)
  Receive Date: 20041012
  Receipt Date: 20040614
  Transmission Date: 20050328
  Serious: No
  Sender: FDA-Public Use
  Company Number: A03200401933

PATIENT
  Age: 67 Year
  Sex: Male

DRUGS (1)
  1. UROXATRAL [Suspect]
     Dosage: ORAL
     Route: 048

REACTIONS (1)
  - BLOOD GLUCOSE INCREASED [None]
